FAERS Safety Report 8912104 (Version 1)
Quarter: 2012Q4

REPORT INFORMATION
  Report Type: 
  Country: SE (occurrence: SE)
  Receive Date: 20121116
  Receipt Date: 20121116
  Transmission Date: 20130627
  Serious: Yes (Hospitalization)
  Sender: FDA-Public Use
  Company Number: SE-PFIZER INC-2012283006

PATIENT
  Age: 60 Year
  Sex: Male
  Weight: 101 kg

DRUGS (4)
  1. GENOTROPIN [Suspect]
     Dosage: 0.2 mg, 1x/day, 7 injections/week
     Route: 058
     Dates: start: 20021018
  2. LEVOTHYROXINE [Concomitant]
     Indication: TSH DECREASED
     Dosage: UNK
     Dates: start: 19821201
  3. NEBIDO [Concomitant]
     Indication: HYPOGONADISM
     Dosage: UNK
     Dates: start: 20081107
  4. HYDROCORTISONE [Concomitant]
     Indication: ADRENAL INSUFFICIENCY
     Dosage: UNK
     Dates: start: 20090101

REACTIONS (1)
  - Back disorder [Unknown]
